FAERS Safety Report 4577825-5 (Version None)
Quarter: 2005Q1

REPORT INFORMATION
  Report Type: 
  Country: None (occurrence: None)
  Receive Date: 20050209
  Receipt Date: 20050125
  Transmission Date: 20050727
  Serious: Yes (Hospitalization)
  Sender: FDA-Public Use
  Company Number: A02200500216

PATIENT
  Age: 39 Year
  Sex: Male

DRUGS (3)
  1. ELOXATIN [Suspect]
     Indication: COLON CANCER STAGE III
     Route: 042
     Dates: start: 20041123, end: 20041123
  2. FLUOROURACIL [Concomitant]
  3. FOLINIC ACID [Concomitant]

REACTIONS (4)
  - CONDITION AGGRAVATED [None]
  - CROHN'S DISEASE [None]
  - ILEITIS [None]
  - PYREXIA [None]
